FAERS Safety Report 19357858 (Version 1)
Quarter: 2021Q2

REPORT INFORMATION
  Report Type: Spontaneous
  Country: GB (occurrence: GB)
  Receive Date: 20210601
  Receipt Date: 20210601
  Transmission Date: 20210717
  Serious: Yes (Hospitalization, Other)
  Sender: FDA-Public Use
  Company Number: NVSC2021GB116053

PATIENT
  Age: 65 Year
  Sex: Male
  Weight: 92.52 kg

DRUGS (1)
  1. LISINOPRIL. [Suspect]
     Active Substance: LISINOPRIL
     Indication: HYPERTENSION
     Dosage: 5 MG, BID
     Route: 048
     Dates: start: 20180202, end: 20210420

REACTIONS (3)
  - Psoriasis [Recovering/Resolving]
  - Basal cell carcinoma [Recovered/Resolved]
  - Skin cancer [Recovered/Resolved with Sequelae]

NARRATIVE: CASE EVENT DATE: 20200101
